FAERS Safety Report 6221890-6 (Version None)
Quarter: 2009Q2

REPORT INFORMATION
  Report Type: 
  Country: None (occurrence: None)
  Receive Date: 20090608
  Receipt Date: 20090608
  Transmission Date: 20091009
  Serious: No
  Sender: FDA-Public Use
  Company Number: None

PATIENT
  Sex: Female

DRUGS (1)
  1. IMITREX [Suspect]
     Dosage: 100 MG PRN ORAL
     Route: 048

REACTIONS (4)
  - ABNORMAL SENSATION IN EYE [None]
  - DIZZINESS [None]
  - DRUG INEFFECTIVE [None]
  - PRODUCT SUBSTITUTION ISSUE [None]
